FAERS Safety Report 11884071 (Version 1)
Quarter: 2016Q1

REPORT INFORMATION
  Report Type: Spontaneous
  Country: FR (occurrence: FR)
  Receive Date: 20160102
  Receipt Date: 20160102
  Transmission Date: 20160526
  Serious: Yes (Hospitalization, Other)
  Sender: FDA-Public Use
  Company Number: FR-BRISTOL-MYERS SQUIBB COMPANY-BMS-2015-091986

PATIENT
  Age: 47 Year
  Sex: Female

DRUGS (11)
  1. ZYPREXA [Suspect]
     Active Substance: OLANZAPINE
     Indication: MENTAL DISORDER
     Dosage: 15 MG, QD
     Route: 048
  2. SULFARLEM [Concomitant]
     Active Substance: ANETHOLTRITHION
     Indication: PRODUCT USED FOR UNKNOWN INDICATION
     Dosage: 125 MG, QD
     Route: 048
  3. TOVIAZ [Concomitant]
     Active Substance: FESOTERODINE FUMARATE
     Indication: URINARY INCONTINENCE
     Dosage: 4 MG, QD
     Route: 048
  4. ABILIFY [Suspect]
     Active Substance: ARIPIPRAZOLE
     Indication: MENTAL DISORDER
     Dosage: 30 MG, QD (2 15MG TABLETS PER DAY)
     Route: 048
  5. PARKINANE LP [Concomitant]
     Active Substance: TRIHEXYPHENIDYL HYDROCHLORIDE
     Indication: PRODUCT USED FOR UNKNOWN INDICATION
     Dosage: 5 MG, QD
     Route: 048
  6. CERIS [Concomitant]
     Active Substance: TROSPIUM CHLORIDE
     Indication: URINARY INCONTINENCE
     Dosage: 20 MG, QD
     Route: 048
  7. PAROXETINE ARROW [Suspect]
     Active Substance: PAROXETINE\PAROXETINE HYDROCHLORIDE
     Indication: MENTAL DISORDER
     Dosage: 20 MG, QD
     Route: 048
  8. EPITOMAX [Suspect]
     Active Substance: TOPIRAMATE
     Indication: MENTAL DISORDER
     Dosage: 50 MG, QD
     Route: 048
  9. STILNOX [Concomitant]
     Active Substance: ZOLPIDEM TARTRATE
     Indication: INSOMNIA
     Dosage: 5 MG, QD
     Route: 048
  10. DOLIPRANE [Concomitant]
     Active Substance: ACETAMINOPHEN
     Indication: PAIN
     Dosage: 3 G, QD
     Route: 048
  11. NOZINAN                            /00038601/ [Suspect]
     Active Substance: LEVOMEPROMAZINE
     Indication: MENTAL DISORDER
     Dosage: 150 MG, QD
     Route: 048

REACTIONS (1)
  - Pulmonary embolism [Recovered/Resolved]

NARRATIVE: CASE EVENT DATE: 20151116
